FAERS Safety Report 9921253 (Version 2)
Quarter: 2014Q1

REPORT INFORMATION
  Report Type: Spontaneous
  Country: IT (occurrence: IT)
  Receive Date: 20140225
  Receipt Date: 20140312
  Transmission Date: 20141002
  Serious: Yes (Other)
  Sender: FDA-Public Use
  Company Number: IT-VERTEX PHARMACEUTICALS INC-2014-000936

PATIENT
  Age: 47 Year
  Sex: Male

DRUGS (2)
  1. INCIVO [Suspect]
     Indication: CHRONIC HEPATITIS C
     Dosage: 2250 MG, QD
     Route: 048
     Dates: start: 20131026, end: 20131230
  2. COPEGUS [Suspect]
     Indication: CHRONIC HEPATITIS C
     Dosage: 800 MG, QD
     Route: 048
     Dates: start: 20131026, end: 20131231

REACTIONS (2)
  - Dermatitis bullous [Not Recovered/Not Resolved]
  - Erythema [Not Recovered/Not Resolved]
